FAERS Safety Report 6327619-5 (Version None)
Quarter: 2009Q3

REPORT INFORMATION
  Report Type: 
  Country: None (occurrence: None)
  Receive Date: 20090825
  Receipt Date: 20090817
  Transmission Date: 20100115
  Serious: Yes (Hospitalization)
  Sender: FDA-Public Use
  Company Number: US-KINGPHARMUSA00001-K200901000

PATIENT
  Age: 62 Year
  Sex: Female

DRUGS (10)
  1. CYTOMEL [Suspect]
     Indication: HYPOTHYROIDISM
     Dosage: UNK
     Route: 048
     Dates: start: 20090501, end: 20090701
  2. LEVOXYL [Suspect]
     Indication: HYPOTHYROIDISM
     Dosage: UNK
     Route: 048
     Dates: start: 20090501, end: 20090701
  3. SYNTHROID [Suspect]
     Indication: HYPOTHYROIDISM
     Dosage: 100 MCG, QD
     Route: 048
     Dates: start: 20090501
  4. SYNTHROID [Suspect]
     Dosage: 25 MCG, QD
     Route: 048
     Dates: end: 20090101
  5. SYNTHROID [Suspect]
     Dosage: 50 MCG, QD
     Route: 048
  6. SYNTHROID [Suspect]
     Dosage: 75 MCG, QD
     Route: 048
  7. THYROID TAB [Suspect]
     Indication: HYPOTHYROIDISM
     Dosage: 1 DF, QD
     Route: 048
     Dates: start: 20090501, end: 20090701
  8. UNITHROID [Suspect]
     Indication: HYPOTHYROIDISM
     Dosage: 1 DF, QD
     Route: 048
     Dates: start: 20090501, end: 20090701
  9. THYROID TAB [Suspect]
     Indication: HYPOTHYROIDISM
     Dosage: UNK
     Route: 048
     Dates: start: 20090501, end: 20090701
  10. LEVOTHYROXINE SODIUM [Suspect]
     Indication: HYPOTHYROIDISM
     Dosage: UNK
     Route: 051
     Dates: start: 20090501, end: 20090701

REACTIONS (4)
  - MOUTH ULCERATION [None]
  - RESPIRATORY DISORDER [None]
  - THROAT TIGHTNESS [None]
  - URTICARIA [None]
